FAERS Safety Report 18570860 (Version 1)
Quarter: 2020Q4

REPORT INFORMATION
  Report Type: Report from Study
  Country: US (occurrence: US)
  Receive Date: 20201202
  Receipt Date: 20201202
  Transmission Date: 20210114
  Serious: Yes (Hospitalization, Other)
  Sender: FDA-Public Use
  Company Number: US-TAKEDA-2020TUS053202

PATIENT
  Sex: Female

DRUGS (1)
  1. HUMAN NORMAL IMMUNOGLOBULIN; LIQUID 20 [Suspect]
     Active Substance: HUMAN IMMUNOGLOBULIN G
     Indication: HYPOGAMMAGLOBULINAEMIA
     Dosage: 6 GRAM
     Route: 065

REACTIONS (7)
  - Infusion site swelling [Unknown]
  - Product dose omission issue [Unknown]
  - Headache [Unknown]
  - Infusion site extravasation [Unknown]
  - Pneumonia [Unknown]
  - Staphylococcal infection [Unknown]
  - Infusion site erythema [Unknown]
